FAERS Safety Report 20143618 (Version 1)
Quarter: 2021Q4

REPORT INFORMATION
  Report Type: Spontaneous
  Country: US (occurrence: US)
  Receive Date: 20211203
  Receipt Date: 20211203
  Transmission Date: 20220303
  Serious: No
  Sender: FDA-Public Use
  Company Number: US-APOTEX-2021AP045531

PATIENT
  Age: 12 Year
  Sex: Male

DRUGS (4)
  1. FLUVOXAMINE [Interacting]
     Active Substance: FLUVOXAMINE
     Indication: Product used for unknown indication
     Dosage: 12.5 MILLIGRAM, Q.H.S.
     Route: 065
  2. FLUVOXAMINE [Interacting]
     Active Substance: FLUVOXAMINE
     Dosage: 25 MILLIGRAM, SINGLE
     Route: 065
  3. CLOZAPINE [Interacting]
     Active Substance: CLOZAPINE
     Indication: Psychotic disorder
     Dosage: UNK
     Route: 065
  4. CLOZAPINE [Interacting]
     Active Substance: CLOZAPINE
     Dosage: 525 MILLIGRAM, QD, TOTAL
     Route: 065

REACTIONS (8)
  - Fall [Unknown]
  - Orthostatic hypotension [Unknown]
  - Enuresis [Unknown]
  - Sedation [Unknown]
  - Constipation [Unknown]
  - Vomiting [Unknown]
  - Drug interaction [Unknown]
  - Antipsychotic drug level increased [Unknown]
